FAERS Safety Report 5378831-3 (Version None)
Quarter: 2007Q2

REPORT INFORMATION
  Report Type: 
  Country: None (occurrence: None)
  Receive Date: 20070530
  Receipt Date: 20070227
  Transmission Date: 20071010
  Serious: No
  Sender: FDA-Public Use
  Company Number: 2007PV030760

PATIENT
  Age: 67 Year
  Sex: Male
  Weight: 127.0072 kg

DRUGS (17)
  1. BYETTA [Suspect]
     Indication: DIABETES MELLITUS NON-INSULIN-DEPENDENT
     Dosage: 10 MCG;BID;SC; 5 MCG; BID;SC
     Route: 058
     Dates: start: 20051001, end: 20051101
  2. BYETTA [Suspect]
     Indication: DIABETES MELLITUS NON-INSULIN-DEPENDENT
     Dosage: 10 MCG;BID;SC; 5 MCG; BID;SC
     Route: 058
     Dates: start: 20051101
  3. GLIPIZIDE [Concomitant]
  4. AMIODARONE HCL [Concomitant]
  5. ZANTAC 150 [Concomitant]
  6. DIOVAN [Concomitant]
  7. LOPRESSOR [Concomitant]
  8. FOLIC ACID [Concomitant]
  9. MICRO-K [Concomitant]
  10. IMDUR [Concomitant]
  11. SYNTHROID [Concomitant]
  12. ZOCOR [Concomitant]
  13. NORVASC [Concomitant]
  14. B-6 [Concomitant]
  15. VITAMIN B-12 [Concomitant]
  16. COLACE [Concomitant]
  17. ECOTRIN [Concomitant]

REACTIONS (2)
  - NAUSEA [None]
  - WEIGHT DECREASED [None]
